FAERS Safety Report 7106230-2 (Version None)
Quarter: 2010Q4

REPORT INFORMATION
  Report Type: 
  Country: None (occurrence: None)
  Receive Date: 20101116
  Receipt Date: 20101103
  Transmission Date: 20110411
  Serious: Yes (Other)
  Sender: FDA-Public Use
  Company Number: US-ELI_LILLY_AND_COMPANY-US201011001015

PATIENT
  Age: 21 Year
  Sex: Male

DRUGS (4)
  1. ZYPREXA [Suspect]
     Dosage: 5 MG, DAILY (1/D)
     Dates: start: 20100501, end: 20100101
  2. ZYPREXA [Suspect]
     Dosage: 2.5 MG, DAILY (1/D)
  3. GEODON [Concomitant]
     Dosage: 80 MG, 2/D
     Dates: start: 20100501
  4. PROPRANOLOL [Concomitant]
     Dosage: 5 MG, 2/D
     Dates: start: 20100501

REACTIONS (3)
  - DIZZINESS [None]
  - ELECTROCARDIOGRAM QT PROLONGED [None]
  - SYNCOPE [None]
